FAERS Safety Report 6263558-6 (Version None)
Quarter: 2009Q3

REPORT INFORMATION
  Report Type: 
  Country: None (occurrence: None)
  Receive Date: 20090710
  Receipt Date: 20090423
  Transmission Date: 20100115
  Serious: No
  Sender: FDA-Public Use
  Company Number: A0780323A

PATIENT
  Age: 43 Year
  Sex: Female

DRUGS (15)
  1. TYKERB [Suspect]
     Indication: BREAST CANCER
     Dosage: 1250MG PER DAY
     Route: 048
     Dates: start: 20090416
  2. LISINOPRIL [Concomitant]
  3. NAVELBINE [Concomitant]
  4. DIGOXIN [Concomitant]
  5. CARVEDILOL [Concomitant]
  6. COMPAZINE [Concomitant]
  7. LORAZEPAM [Concomitant]
  8. UNSPECIFIED MEDICATION [Concomitant]
  9. VITAMIN D [Concomitant]
  10. MUSHROOMS [Concomitant]
  11. VITAMIN B-12 [Concomitant]
  12. PROBIOTIC [Concomitant]
  13. BENADRYL [Concomitant]
  14. IMODIUM [Concomitant]
  15. DILAUDID [Concomitant]

REACTIONS (4)
  - DERMATITIS ACNEIFORM [None]
  - DIARRHOEA [None]
  - HAEMATOCHEZIA [None]
  - URTICARIA [None]
